FAERS Safety Report 9226271 (Version 1)
Quarter: 2013Q2

REPORT INFORMATION
  Report Type: Report from Study
  Country: CA (occurrence: CA)
  Receive Date: 20130411
  Receipt Date: 20130411
  Transmission Date: 20140414
  Serious: Yes (Hospitalization)
  Sender: FDA-Public Use
  Company Number: CA-ABBOTT-13P-028-1072708-00

PATIENT
  Sex: Female

DRUGS (3)
  1. HUMIRA [Suspect]
     Indication: ANKYLOSING SPONDYLITIS
     Route: 058
     Dates: start: 20120312, end: 201302
  2. HUMIRA [Suspect]
     Route: 058
     Dates: start: 20130329
  3. MORPHINE [Suspect]
     Indication: PAIN IN EXTREMITY
     Route: 048
     Dates: start: 201303, end: 201303

REACTIONS (8)
  - Gait disturbance [Recovering/Resolving]
  - Pain in extremity [Recovering/Resolving]
  - Fatigue [Unknown]
  - Hypersensitivity [Recovering/Resolving]
  - Rash [Recovering/Resolving]
  - Pain [Recovering/Resolving]
  - Pain [Recovered/Resolved]
  - Loss of consciousness [Recovered/Resolved]
